FAERS Safety Report 20894034 (Version 2)
Quarter: 2022Q3

REPORT INFORMATION
  Report Type: Spontaneous
  Country: US (occurrence: US)
  Receive Date: 20220531
  Receipt Date: 20220818
  Transmission Date: 20221027
  Serious: No
  Sender: FDA-Public Use
  Company Number: US-BRISTOL-MYERS SQUIBB COMPANY-2022-036186

PATIENT
  Age: 78 Year
  Sex: Male
  Weight: 53.52 kg

DRUGS (1)
  1. REVLIMID [Suspect]
     Active Substance: LENALIDOMIDE
     Indication: Plasma cell myeloma
     Dosage: 21 DAYS, REST 7 DAYS
     Route: 048
     Dates: start: 20200302

REACTIONS (3)
  - Pruritus [Unknown]
  - Rash [Recovered/Resolved]
  - Hepatic enzyme increased [Recovered/Resolved]
